FAERS Safety Report 5570678-8 (Version None)
Quarter: 2007Q4

REPORT INFORMATION
  Report Type: 
  Country: None (occurrence: None)
  Receive Date: 20071221
  Receipt Date: 20071217
  Transmission Date: 20080405
  Serious: Yes (Hospitalization)
  Sender: FDA-Public Use
  Company Number: GB-JNJFOC-20071204752

PATIENT
  Age: 45 Year
  Sex: Male

DRUGS (5)
  1. RISPERIDONE [Suspect]
     Indication: SCHIZOPHRENIA
     Route: 048
  2. LORAZEPAM [Concomitant]
     Indication: AGITATION
     Route: 048
  3. NICOTINE [Concomitant]
     Indication: NICOTINE DEPENDENCE
     Route: 061
  4. PROCYLIDINE [Concomitant]
     Indication: EXTRAPYRAMIDAL DISORDER
     Route: 048
  5. SENNA [Concomitant]
     Indication: CONSTIPATION
     Route: 048

REACTIONS (1)
  - BLOOD SODIUM DECREASED [None]
